FAERS Safety Report 20105360 (Version 1)
Quarter: 2021Q4

REPORT INFORMATION
  Report Type: Spontaneous
  Country: FR (occurrence: FR)
  Receive Date: 20211124
  Receipt Date: 20211124
  Transmission Date: 20220304
  Serious: Yes (Death, Congenital Anomaly, Other)
  Sender: FDA-Public Use
  Company Number: FR-ABBVIE-21K-056-4173222-00

PATIENT
  Sex: Male
  Weight: 2.75 kg

DRUGS (1)
  1. VALPROATE SODIUM [Suspect]
     Active Substance: VALPROATE SODIUM
     Indication: Maternal exposure timing unspecified
     Route: 064

REACTIONS (13)
  - Lung disorder [Fatal]
  - Dyspnoea [Unknown]
  - Limb malformation [Unknown]
  - Dysmorphism [Unknown]
  - Foetal exposure during pregnancy [Unknown]
  - Hypospadias [Unknown]
  - Cryptorchism [Unknown]
  - Talipes [Unknown]
  - Nipple disorder [Unknown]
  - Clinodactyly [Unknown]
  - Ligament laxity [Unknown]
  - Cardiac murmur [Unknown]
  - Clonic convulsion [Unknown]

NARRATIVE: CASE EVENT DATE: 19881201
